FAERS Safety Report 5886211-7 (Version None)
Quarter: 2008Q3

REPORT INFORMATION
  Report Type: 
  Country: None (occurrence: None)
  Receive Date: 20080917
  Receipt Date: 20080903
  Transmission Date: 20090109
  Serious: Yes (Other)
  Sender: FDA-Public Use
  Company Number: IN-ELI_LILLY_AND_COMPANY-IN200808005182

PATIENT
  Sex: Female

DRUGS (3)
  1. FORTEO [Suspect]
     Indication: OSTEOPOROSIS
     Dosage: 20 UG, DAILY (1/D)
     Route: 058
     Dates: start: 20070101
  2. CALCIUM [Concomitant]
     Dosage: UNK, UNKNOWN
     Route: 048
  3. VITAMIN D [Concomitant]
     Dosage: UNK, UNKNOWN
     Route: 048

REACTIONS (1)
  - BONE SARCOMA [None]
